FAERS Safety Report 10956424 (Version 2)
Quarter: 2015Q2

REPORT INFORMATION
  Report Type: Spontaneous
  Country: JP (occurrence: JP)
  Receive Date: 20150326
  Receipt Date: 20150603
  Transmission Date: 20150821
  Serious: Yes (Death)
  Sender: FDA-Public Use
  Company Number: JP-TEVA-549543ISR

PATIENT
  Age: 83 Year
  Sex: Female
  Weight: 40 kg

DRUGS (11)
  1. FENTANYL. [Concomitant]
     Active Substance: FENTANYL
     Dosage: 6.3 MILLIGRAM DAILY;
     Route: 062
     Dates: start: 20141231, end: 20150301
  2. E-FEN BUCCAL [Suspect]
     Active Substance: FENTANYL CITRATE
     Dosage: 200 MICROGRAM-400 MICROGRAM
     Route: 002
     Dates: start: 20141231, end: 20150225
  3. DECADRON [Concomitant]
     Active Substance: DEXAMETHASONE
     Dosage: 1.65 MILLIGRAM DAILY;
     Route: 042
     Dates: start: 20141211, end: 20150301
  4. E-FEN BUCCAL [Suspect]
     Active Substance: FENTANYL CITRATE
     Dosage: 400 MICROGRAM-800 MICROGRAM
     Route: 002
     Dates: start: 20150226, end: 20150228
  5. FENTANYL. [Concomitant]
     Active Substance: FENTANYL
     Dosage: 4.2 MILLIGRAM DAILY;
     Route: 062
     Dates: start: 20141214, end: 20141230
  6. ELNEOPA NO.2 [Concomitant]
     Active Substance: AMINO ACIDS\CARBOHYDRATES\ELECTROLYTES NOS\VITAMINS
     Dosage: 1500 ML DAILY;
     Route: 042
     Dates: start: 20141211, end: 20150301
  7. LENDORMIN D [Concomitant]
     Active Substance: BROTIZOLAM
     Indication: INSOMNIA
     Dosage: .25 MILLIGRAM DAILY;
     Route: 048
     Dates: start: 20150105, end: 20150301
  8. MILLIS [Concomitant]
     Dosage: 5 MILLIGRAM DAILY;
     Route: 062
     Dates: start: 20150119, end: 20150301
  9. PRIMPERAN [Concomitant]
     Active Substance: METOCLOPRAMIDE HYDROCHLORIDE
     Dosage: 1 DOSAGE FORMS DAILY;
     Route: 042
     Dates: start: 20141211, end: 20150301
  10. E-FEN BUCCAL [Suspect]
     Active Substance: FENTANYL CITRATE
     Indication: BREAKTHROUGH PAIN
     Dosage: 100 MICROGRAM-200 MICROGRAM
     Route: 002
     Dates: start: 20141211, end: 20141230
  11. FENTANYL. [Concomitant]
     Active Substance: FENTANYL
     Indication: CANCER PAIN
     Dosage: 2.1 MILLIGRAM DAILY;
     Route: 062
     Dates: start: 20141211, end: 20141213

REACTIONS (1)
  - Oesophageal carcinoma [Fatal]

NARRATIVE: CASE EVENT DATE: 20150301
